FAERS Safety Report 11112540 (Version 2)
Quarter: 2015Q2

REPORT INFORMATION
  Report Type: Report from Study
  Country: US (occurrence: US)
  Receive Date: 20150514
  Receipt Date: 20150527
  Transmission Date: 20150821
  Serious: Yes (Life-Threatening, Other)
  Sender: FDA-Public Use
  Company Number: US-AMGEN-USASL2015045317

PATIENT
  Age: 48 Year
  Sex: Female
  Weight: 83.9 kg

DRUGS (23)
  1. KLONOPIN [Concomitant]
     Active Substance: CLONAZEPAM
     Dosage: 0.25 MG, AS NECESSARY
     Route: 048
  2. KELNOR [Concomitant]
     Dosage: 1 DF, QD
     Route: 048
  3. RESTASIS [Concomitant]
     Active Substance: CYCLOSPORINE
     Dosage: UNK UNK, BID
  4. NEURONTIN [Concomitant]
     Active Substance: GABAPENTIN
     Dosage: 100 MG, BID
     Route: 048
     Dates: start: 20150213
  5. ZANTAC [Concomitant]
     Active Substance: RANITIDINE HYDROCHLORIDE
     Dosage: 150 MG, QD
     Route: 048
  6. DIOVAN [Concomitant]
     Active Substance: VALSARTAN
     Dosage: 40 MG, QD
     Route: 048
     Dates: start: 20150401
  7. EPIPEN [Concomitant]
     Active Substance: EPINEPHRINE
     Dosage: UNK UNK, AS NECESSARY
  8. TRAMADOL [Concomitant]
     Active Substance: TRAMADOL
  9. IMURAN [Concomitant]
     Active Substance: AZATHIOPRINE
     Dosage: 50 MG, QD
     Route: 048
     Dates: start: 20150410
  10. MULTIVITAMIN                       /00097801/ [Concomitant]
     Active Substance: VITAMINS
     Dosage: 1 DF, QD
     Route: 048
  11. DELTASONE                          /00044701/ [Concomitant]
     Dosage: 10 MG, QD
     Route: 048
     Dates: start: 20140729, end: 20150507
  12. DYAZIDE [Concomitant]
     Active Substance: HYDROCHLOROTHIAZIDE\TRIAMTERENE
     Dosage: 1 DF, QD
     Route: 048
  13. CYMBALTA [Concomitant]
     Active Substance: DULOXETINE HYDROCHLORIDE
     Route: 048
  14. TYLENOL [Concomitant]
     Active Substance: ACETAMINOPHEN
     Indication: PAIN
     Dosage: 325 MG, AS NECESSARY
     Route: 048
  15. NEXIUM [Concomitant]
     Active Substance: ESOMEPRAZOLE MAGNESIUM
     Dosage: 40 MG, BID
     Dates: start: 20150408
  16. ALTACE [Concomitant]
     Active Substance: RAMIPRIL
     Dosage: 10 MG, QD
     Route: 048
  17. BACTRIM [Concomitant]
     Active Substance: SULFAMETHOXAZOLE\TRIMETHOPRIM
     Dosage: 1 DF, 3 TIMES/WK
     Route: 048
     Dates: start: 20140618, end: 20150407
  18. BIOTIN [Concomitant]
     Active Substance: BIOTIN
     Dosage: 2500 MG, QD
     Route: 048
  19. FERROUS SULFATE [Concomitant]
     Active Substance: FERROUS SULFATE\FERROUS SULFATE, DRIED
     Dosage: 325 MG, QD
     Route: 048
  20. NYSTOP [Concomitant]
     Active Substance: NYSTATIN
     Dosage: UNK UNK, AS NECESSARY
     Route: 061
     Dates: start: 20150330
  21. PROLIA [Suspect]
     Active Substance: DENOSUMAB
     Indication: OSTEOPOROSIS POSTMENOPAUSAL
     Dosage: 60 MG, Q6MO
     Route: 058
     Dates: start: 20130815
  22. COREG [Concomitant]
     Active Substance: CARVEDILOL
     Dosage: 12.5 MG, QD
     Route: 048
  23. XYZAL [Concomitant]
     Active Substance: LEVOCETIRIZINE DIHYDROCHLORIDE
     Dosage: 5 MG, QD
     Route: 048

REACTIONS (20)
  - Swollen tongue [Recovering/Resolving]
  - Fibromyalgia [Unknown]
  - White blood cell count increased [Unknown]
  - Blood chloride decreased [Unknown]
  - Haematocrit decreased [Unknown]
  - Fatigue [Unknown]
  - Cushingoid [Unknown]
  - Uterine leiomyoma [Unknown]
  - Hypersensitivity [Unknown]
  - Blood glucose increased [Unknown]
  - Blood cholesterol increased [Unknown]
  - Neutrophil count increased [Unknown]
  - Blood potassium decreased [Unknown]
  - Blood bicarbonate increased [Unknown]
  - Lymphocyte count decreased [Unknown]
  - Anaemia [Unknown]
  - Cardiac sarcoidosis [Unknown]
  - Mean cell haemoglobin decreased [Unknown]
  - Blood lactate dehydrogenase increased [Unknown]
  - Mean cell haemoglobin concentration decreased [Unknown]

NARRATIVE: CASE EVENT DATE: 201406
